FAERS Safety Report 7315347-9 (Version None)
Quarter: 2011Q1

REPORT INFORMATION
  Report Type: 
  Country: None (occurrence: None)
  Receive Date: 20110225
  Receipt Date: 20110208
  Transmission Date: 20110831
  Serious: Yes (Hospitalization)
  Sender: FDA-Public Use
  Company Number: US-BAYER-201036240NA

PATIENT
  Sex: Female
  Weight: 97.052 kg

DRUGS (4)
  1. ALBUTEROL [Concomitant]
  2. YASMIN [Suspect]
     Indication: PRODUCT USED FOR UNKNOWN INDICATION
     Dosage: UNK
     Route: 048
     Dates: start: 20031216, end: 20050928
  3. ADVAIR DISKUS 100/50 [Concomitant]
  4. UNCODEABLE ^UNCLASSIFIABLE^ [Concomitant]
     Dosage: 400 MG, UNK

REACTIONS (6)
  - OEDEMA PERIPHERAL [None]
  - GAIT DISTURBANCE [None]
  - PAIN IN EXTREMITY [None]
  - UNEVALUABLE EVENT [None]
  - TREMOR [None]
  - DEEP VEIN THROMBOSIS [None]
